FAERS Safety Report 4635913-9 (Version None)
Quarter: 2005Q2

REPORT INFORMATION
  Report Type: 
  Country: None (occurrence: None)
  Receive Date: 20050415
  Receipt Date: 20050209
  Transmission Date: 20051028
  Serious: Yes (Hospitalization)
  Sender: FDA-Public Use
  Company Number: GB-BRISTOL-MYERS SQUIBB COMPANY-12854378

PATIENT
  Age: 50 Year
  Sex: Female
  Weight: 78 kg

DRUGS (12)
  1. PACLITAXEL [Suspect]
     Indication: BREAST CANCER
     Dates: start: 20050126, end: 20050126
  2. CYCLOPHOSPHAMIDE [Suspect]
     Indication: BREAST CANCER
     Dates: start: 20041116, end: 20041116
  3. EPIRUBICIN [Suspect]
     Indication: BREAST CANCER
     Dates: start: 20041116, end: 20041116
  4. GEMCITABINE [Suspect]
     Indication: BREAST CANCER
     Dosage: DAY 8 OMITTED; COMMENCED 01-FEB-2005
     Dates: start: 20050126, end: 20050126
  5. CORSODYL [Concomitant]
  6. DIFFLAM [Concomitant]
  7. AMPHOTERICIN B [Concomitant]
  8. MOVICOL [Concomitant]
     Route: 048
  9. DOCUSATE SODIUM [Concomitant]
  10. SENNA [Concomitant]
  11. FYBOGEL [Concomitant]
  12. ADCAL-D3 [Concomitant]
     Route: 048

REACTIONS (5)
  - FATIGUE [None]
  - FOLLICULITIS [None]
  - PAIN [None]
  - PHARYNGOLARYNGEAL PAIN [None]
  - RASH ERYTHEMATOUS [None]
